FAERS Safety Report 15614647 (Version 1)
Quarter: 2018Q4

REPORT INFORMATION
  Report Type: Spontaneous
  Country: US (occurrence: US)
  Receive Date: 20181113
  Receipt Date: 20181113
  Transmission Date: 20190205
  Serious: No
  Sender: FDA-Public Use
  Company Number: US-MYLANLABS-2018M1081943

PATIENT
  Sex: Female
  Weight: 112 kg

DRUGS (1)
  1. CLONAZEPAM TABLETS, USP [Suspect]
     Active Substance: CLONAZEPAM
     Indication: RESTLESS LEGS SYNDROME
     Dosage: UNK
     Route: 065
     Dates: start: 2018

REACTIONS (5)
  - Dyskinesia [Unknown]
  - Insomnia [Unknown]
  - Drug ineffective for unapproved indication [Unknown]
  - Fall [Unknown]
  - Anxiety [Unknown]

NARRATIVE: CASE EVENT DATE: 2018
